FAERS Safety Report 5591378-4 (Version None)
Quarter: 2008Q1

REPORT INFORMATION
  Report Type: 
  Country: None (occurrence: None)
  Receive Date: 20080115
  Receipt Date: 20071205
  Transmission Date: 20080703
  Serious: Yes (Death, Hospitalization)
  Sender: FDA-Public Use
  Company Number: FR-AVENTIS-200713786FR

PATIENT
  Age: 66 Year
  Sex: Male

DRUGS (14)
  1. AMARYL [Suspect]
     Route: 048
     Dates: end: 20070101
  2. LASILIX                            /00032601/ [Suspect]
     Route: 048
     Dates: end: 20070101
  3. FLOLAN [Suspect]
     Dosage: DOSE: 16 NG/KG/MN
     Route: 042
     Dates: start: 20070117, end: 20070101
  4. TAHOR [Suspect]
     Route: 048
     Dates: end: 20070101
  5. PREVISCAN                          /00789001/ [Suspect]
     Route: 048
     Dates: end: 20070413
  6. XATRAL                             /00975301/ [Suspect]
     Route: 048
     Dates: start: 20070201, end: 20070413
  7. AVODART [Suspect]
     Route: 048
     Dates: start: 20070301, end: 20070413
  8. FONZYLANE [Concomitant]
     Route: 048
     Dates: end: 20070101
  9. XANAX [Concomitant]
     Route: 048
     Dates: end: 20070101
  10. SYMBICORT [Concomitant]
     Route: 055
     Dates: end: 20070101
  11. CITALOPRAM [Concomitant]
     Route: 048
     Dates: end: 20070101
  12. AUGMENTIN '125' [Concomitant]
     Dates: start: 20070410, end: 20070413
  13. TOBREX [Concomitant]
     Dates: start: 20070411, end: 20070101
  14. OXYGEN [Concomitant]
     Route: 055
     Dates: end: 20070101

REACTIONS (2)
  - DEATH [None]
  - THROMBOCYTOPENIA [None]
